FAERS Safety Report 9347912 (Version 1)
Quarter: 2013Q2

REPORT INFORMATION
  Report Type: Spontaneous
  Country: US (occurrence: None)
  Receive Date: 20130612
  Receipt Date: 20130612
  Transmission Date: 20140414
  Serious: Yes (Other)
  Sender: FDA-Public Use
  Company Number: None

PATIENT
  Age: 11 Year
  Sex: Female

DRUGS (1)
  1. ZYRTEC [Suspect]
     Indication: SEASONAL ALLERGY
     Dosage: QHS
     Route: 048
     Dates: start: 20130429, end: 20130529

REACTIONS (4)
  - Anxiety [None]
  - Nervousness [None]
  - Suicidal ideation [None]
  - Abnormal behaviour [None]
